FAERS Safety Report 19474435 (Version 1)
Quarter: 2021Q2

REPORT INFORMATION
  Report Type: Spontaneous
  Country: JP (occurrence: JP)
  Receive Date: 20210629
  Receipt Date: 20210629
  Transmission Date: 20210717
  Serious: Yes (Hospitalization)
  Sender: FDA-Public Use
  Company Number: JP-ABBVIE-21K-087-3760478-00

PATIENT
  Age: 73 Year
  Sex: Female

DRUGS (1)
  1. RINVOQ [Suspect]
     Active Substance: UPADACITINIB
     Indication: RHEUMATIC DISORDER
     Route: 048
     Dates: start: 20201222

REACTIONS (4)
  - Pneumocystis jirovecii pneumonia [Recovering/Resolving]
  - Oral herpes [Recovered/Resolved]
  - Polymyositis [Unknown]
  - Stress [Unknown]

NARRATIVE: CASE EVENT DATE: 20210125
